FAERS Safety Report 8128884-4 (Version None)
Quarter: 2012Q1

REPORT INFORMATION
  Report Type: 
  Country: None (occurrence: None)
  Receive Date: 20120210
  Receipt Date: 20120209
  Transmission Date: 20120608
  Serious: Yes (Other)
  Sender: FDA-Public Use
  Company Number: US-PFIZER INC-2012036562

PATIENT
  Sex: Male

DRUGS (9)
  1. CHANTIX [Suspect]
     Indication: SMOKING CESSATION THERAPY
     Dosage: 0.5 MG, DAILY
     Route: 048
     Dates: start: 20120101, end: 20120101
  2. ZOCOR [Concomitant]
     Indication: BLOOD CHOLESTEROL INCREASED
     Dosage: 40 MG, DAILY
     Route: 048
  3. IBUPROFEN [Concomitant]
     Indication: PAIN
     Dosage: UNK, AS NEEDED
  4. BYSTOLIC [Concomitant]
     Indication: HYPERTENSION
     Dosage: 5 MG, DAILY
     Route: 048
  5. GABAPENTIN [Concomitant]
     Indication: SLEEP DISORDER
     Dosage: 600 MG, DAILY
  6. REQUIP [Concomitant]
     Indication: RESTLESS LEGS SYNDROME
     Dosage: 1.5 MG, DAILY
     Route: 048
  7. CHANTIX [Suspect]
     Dosage: 1 MG, 2X/DAY
     Route: 048
     Dates: start: 20120101
  8. CYMBALTA [Concomitant]
     Indication: PAIN
     Dosage: 60 MG, DAILY
  9. TRAZODONE [Concomitant]
     Indication: SLEEP DISORDER
     Dosage: 75 MG, DAILY

REACTIONS (4)
  - DIARRHOEA [None]
  - SPUTUM DISCOLOURED [None]
  - ABDOMINAL DISCOMFORT [None]
  - LOWER RESPIRATORY TRACT INFECTION [None]
